FAERS Safety Report 9267367 (Version 1)
Quarter: 2013Q2

REPORT INFORMATION
  Report Type: Spontaneous
  Country: IT (occurrence: IT)
  Receive Date: 20130502
  Receipt Date: 20130502
  Transmission Date: 20140414
  Serious: Yes (Other)
  Sender: FDA-Public Use
  Company Number: IT-JNJFOC-20130413242

PATIENT
  Age: 72 Year
  Sex: Female

DRUGS (2)
  1. SPORANOX [Suspect]
     Indication: ONYCHOMYCOSIS
     Route: 048
     Dates: start: 20130308, end: 20130313
  2. IPERTEN [Suspect]
     Indication: HYPERTENSION
     Route: 065
     Dates: start: 20111104, end: 20130313

REACTIONS (3)
  - Malaise [Recovered/Resolved]
  - Asthenia [Recovered/Resolved]
  - Oedema peripheral [Recovered/Resolved]
